FAERS Safety Report 23797263 (Version 8)
Quarter: 2024Q3

REPORT INFORMATION
  Report Type: Spontaneous
  Country: US (occurrence: US)
  Receive Date: 20240430
  Receipt Date: 20240927
  Transmission Date: 20241017
  Serious: Yes (Hospitalization, Other)
  Sender: NOVARTIS
  Company Number: US-002147023-NVSC2024US087966

PATIENT
  Age: 34 Year
  Sex: Female

DRUGS (5)
  1. KESIMPTA [Suspect]
     Active Substance: OFATUMUMAB
     Indication: Relapsing-remitting multiple sclerosis
     Dosage: UNK
     Route: 065
  2. ADVIL [Concomitant]
     Active Substance: IBUPROFEN\IBUPROFEN SODIUM
     Indication: Product used for unknown indication
     Dosage: UNK
     Route: 065
  3. TYLENOL [Concomitant]
     Active Substance: ACETAMINOPHEN
     Indication: Product used for unknown indication
     Dosage: UNK
     Route: 065
  4. BENADRYL [Concomitant]
     Active Substance: DIPHENHYDRAMINE HYDROCHLORIDE
     Indication: Product used for unknown indication
     Dosage: UNK
     Route: 065
  5. ZOFRAN [Concomitant]
     Active Substance: ONDANSETRON HYDROCHLORIDE
     Indication: Product used for unknown indication
     Dosage: UNK
     Route: 065

REACTIONS (25)
  - Balance disorder [Recovered/Resolved]
  - Multiple sclerosis relapse [Unknown]
  - Dizziness [Recovered/Resolved]
  - Blindness unilateral [Unknown]
  - Visual impairment [Unknown]
  - Brain fog [Unknown]
  - Optic neuritis [Unknown]
  - Fatigue [Unknown]
  - Temperature intolerance [Unknown]
  - Electric shock sensation [Unknown]
  - Progressive multifocal leukoencephalopathy [Unknown]
  - Headache [Unknown]
  - Musculoskeletal chest pain [Unknown]
  - Abdominal pain [Unknown]
  - Cognitive disorder [Unknown]
  - Musculoskeletal disorder [Unknown]
  - Chest discomfort [Unknown]
  - Vein rupture [Unknown]
  - Flushing [Unknown]
  - Heart rate decreased [Unknown]
  - Pain [Unknown]
  - Feeling abnormal [Unknown]
  - Hiatus hernia [Unknown]
  - Chest pain [Unknown]
  - Costochondritis [Unknown]
